FAERS Safety Report 12808058 (Version 1)
Quarter: 2016Q4

REPORT INFORMATION
  Report Type: Spontaneous
  Country: IL (occurrence: IL)
  Receive Date: 20161004
  Receipt Date: 20161004
  Transmission Date: 20170207
  Serious: Yes (Hospitalization)
  Sender: FDA-Public Use
  Company Number: IL-ELI_LILLY_AND_COMPANY-IL201609011813

PATIENT
  Age: 84 Year
  Sex: Female

DRUGS (3)
  1. FORTEO [Suspect]
     Active Substance: TERIPARATIDE
     Indication: PRODUCT USED FOR UNKNOWN INDICATION
     Dosage: 20 UG, QD
     Route: 058
     Dates: start: 201603, end: 2016
  2. WARFARIN [Concomitant]
     Active Substance: WARFARIN
     Indication: ASTHMA
  3. JANUVIA [Concomitant]
     Active Substance: SITAGLIPTIN PHOSPHATE

REACTIONS (2)
  - Skin ulcer [Recovering/Resolving]
  - Calciphylaxis [Recovering/Resolving]

NARRATIVE: CASE EVENT DATE: 2016
